FAERS Safety Report 23690849 (Version 1)
Quarter: 2024Q2

REPORT INFORMATION
  Report Type: Spontaneous
  Country: ES (occurrence: ES)
  Receive Date: 20240401
  Receipt Date: 20240401
  Transmission Date: 20240716
  Serious: Yes (Other)
  Sender: FDA-Public Use
  Company Number: None

PATIENT
  Age: 49 Year
  Sex: Female

DRUGS (2)
  1. QUETIAPINE [Suspect]
     Active Substance: QUETIAPINE
     Indication: Affective disorder
     Dosage: (1136A)
     Route: 048
     Dates: start: 20231023, end: 20231117
  2. QUETIAPINE [Suspect]
     Active Substance: QUETIAPINE
     Indication: Affective disorder
     Dosage: (1136A)
     Route: 048
     Dates: start: 20231117, end: 20240221

REACTIONS (4)
  - Secondary hypogonadism [Unknown]
  - Amenorrhoea [Unknown]
  - Hyperprolactinaemia [Unknown]
  - Libido decreased [Unknown]

NARRATIVE: CASE EVENT DATE: 20231101
